FAERS Safety Report 25107150 (Version 1)
Quarter: 2025Q1

REPORT INFORMATION
  Report Type: Report from Study
  Country: CA (occurrence: CA)
  Receive Date: 20250321
  Receipt Date: 20250321
  Transmission Date: 20250409
  Serious: Yes (Death, Other)
  Sender: SANDOZ
  Company Number: CA-002147023-NVSC2022CA188317

PATIENT
  Sex: Female

DRUGS (1)
  1. HYRIMOZ [Suspect]
     Active Substance: ADALIMUMAB-ADAZ
     Indication: Ankylosing spondylitis
     Dosage: 40 MG, BIW
     Route: 058
     Dates: start: 20211013

REACTIONS (4)
  - Death [Fatal]
  - Inflammatory bowel disease [Unknown]
  - Diarrhoea [Recovered/Resolved]
  - Anaemia [Unknown]
